FAERS Safety Report 21352872 (Version 1)
Quarter: 2022Q3

REPORT INFORMATION
  Report Type: Spontaneous
  Country: DE (occurrence: DE)
  Receive Date: 20220920
  Receipt Date: 20220920
  Transmission Date: 20221027
  Serious: Yes (Life-Threatening, Other)
  Sender: FDA-Public Use
  Company Number: DE-SUN PHARMACEUTICAL INDUSTRIES LTD-2020R1-239341

PATIENT
  Age: 38 Year
  Sex: Female

DRUGS (1)
  1. FERROUS SULFATE [Suspect]
     Active Substance: FERROUS SULFATE
     Indication: Product used for unknown indication
     Dosage: 150MG PER KG BODYWEIGHT, TOTAL OF 9 G
     Route: 065

REACTIONS (8)
  - Suicide attempt [Unknown]
  - Poisoning deliberate [Unknown]
  - Nausea [Recovered/Resolved]
  - Vomiting [Recovered/Resolved]
  - Abdominal pain [Unknown]
  - Lethargy [Unknown]
  - Tachycardia [Unknown]
  - Hypotension [Unknown]
